FAERS Safety Report 11686511 (Version 1)
Quarter: 2015Q4

REPORT INFORMATION
  Report Type: Spontaneous
  Country: TR (occurrence: TR)
  Receive Date: 20151030
  Receipt Date: 20151030
  Transmission Date: 20160304
  Serious: Yes (Hospitalization, Other)
  Sender: FDA-Public Use
  Company Number: TR-JUBILANT CADISTA PHARMACEUTICALS-2015JUB00344

PATIENT
  Age: 36 Year
  Sex: Male

DRUGS (5)
  1. LAMOTRIGINE. [Suspect]
     Active Substance: LAMOTRIGINE
     Indication: BIPOLAR DISORDER
     Dosage: 25 MG, 1X/DAY
  2. LAMOTRIGINE. [Suspect]
     Active Substance: LAMOTRIGINE
     Dosage: 50 MG, 1X/DAY
  3. SERTRALINE [Concomitant]
     Active Substance: SERTRALINE HYDROCHLORIDE
     Indication: BIPOLAR DISORDER
     Dosage: 50 MG, 1X/DAY
  4. VALPROIC ACID. [Suspect]
     Active Substance: VALPROIC ACID
     Indication: BIPOLAR DISORDER
     Dosage: 1000 MG, 1X/DAY
  5. OLANZAPINE. [Concomitant]
     Active Substance: OLANZAPINE
     Indication: BIPOLAR DISORDER
     Dosage: 5 MG, 1X/DAY

REACTIONS (10)
  - Toxic epidermal necrolysis [Recovered/Resolved]
  - Hypoalbuminaemia [Unknown]
  - Dehydration [Recovering/Resolving]
  - Dry eye [Recovering/Resolving]
  - Renal impairment [Recovering/Resolving]
  - Wound infection [Recovering/Resolving]
  - Blepharophimosis [Recovering/Resolving]
  - Electrolyte imbalance [Recovering/Resolving]
  - Sinus tachycardia [Recovering/Resolving]
  - Anaemia [Recovering/Resolving]
